FAERS Safety Report 24193166 (Version 2)
Quarter: 2024Q3

REPORT INFORMATION
  Report Type: Report from Study
  Country: EG (occurrence: EG)
  Receive Date: 20240809
  Receipt Date: 20240828
  Transmission Date: 20241017
  Serious: Yes (Hospitalization)
  Sender: BIOGEN
  Company Number: EG-BIOGEN-2024BI01277022

PATIENT
  Age: 25 Year
  Sex: Female

DRUGS (2)
  1. TYSABRI [Suspect]
     Active Substance: NATALIZUMAB
     Indication: Multiple sclerosis
     Dosage: 300MG/15ML INFUSION
     Route: 050
     Dates: start: 20240316, end: 202407
  2. TYSABRI [Suspect]
     Active Substance: NATALIZUMAB
     Dosage: 300MG/15ML INFUSION
     Route: 050
     Dates: start: 202408

REACTIONS (5)
  - Nephrolithiasis [Not Recovered/Not Resolved]
  - Urethritis [Not Recovered/Not Resolved]
  - Cystitis [Unknown]
  - Intestinal dilatation [Unknown]
  - Urine abnormality [Unknown]

NARRATIVE: CASE EVENT DATE: 20240701
